FAERS Safety Report 7668669-6 (Version None)
Quarter: 2011Q3

REPORT INFORMATION
  Report Type: 
  Country: None (occurrence: None)
  Receive Date: 20110808
  Receipt Date: 20110726
  Transmission Date: 20111222
  Serious: Yes (Death)
  Sender: FDA-Public Use
  Company Number: US-PFIZER INC-2011179732

PATIENT
  Sex: Female
  Weight: 43.08 kg

DRUGS (6)
  1. LIDOCAINE [Concomitant]
  2. THEOBROMINE [Concomitant]
  3. MORPHINE SULFATE [Suspect]
  4. COCAINE [Suspect]
  5. CAFFEINE [Concomitant]
  6. CODEINE [Concomitant]

REACTIONS (2)
  - OVERDOSE [None]
  - SUBSTANCE ABUSE [None]
